FAERS Safety Report 9696791 (Version 2)
Quarter: 2013Q4

REPORT INFORMATION
  Report Type: Spontaneous
  Country: US (occurrence: US)
  Receive Date: 20131119
  Receipt Date: 20131119
  Transmission Date: 20140711
  Serious: Yes (Disabling, Other)
  Sender: FDA-Public Use
  Company Number: US-GILEAD-2007-0014568

PATIENT
  Age: 84 Year
  Sex: Female
  Weight: 53.52 kg

DRUGS (10)
  1. LETAIRIS [Suspect]
     Indication: PULMONARY ARTERIAL HYPERTENSION
     Route: 048
     Dates: start: 20070910
  2. CITRICAL [Concomitant]
     Indication: MINERAL SUPPLEMENTATION
     Route: 048
  3. WARFARIN SODIUM [Concomitant]
     Indication: ANTICOAGULANT THERAPY
     Route: 048
  4. POTASSIUM [Concomitant]
     Indication: MINERAL SUPPLEMENTATION
     Route: 048
  5. DIGITEK [Concomitant]
     Indication: HEART RATE IRREGULAR
     Route: 048
  6. METOLAZONE [Concomitant]
     Indication: ESSENTIAL HYPERTENSION
     Route: 048
  7. ALTACE [Concomitant]
     Indication: ESSENTIAL HYPERTENSION
     Route: 048
  8. COREG [Concomitant]
     Indication: ESSENTIAL HYPERTENSION
     Route: 048
  9. LIPITOR [Concomitant]
     Indication: HYPERCHOLESTEROLAEMIA
     Dosage: NIGHTLY
     Route: 048
  10. FOSAMAX [Concomitant]
     Indication: OSTEOPOROSIS
     Route: 048

REACTIONS (1)
  - Oedema peripheral [Not Recovered/Not Resolved]
